FAERS Safety Report 5208746-2 (Version None)
Quarter: 2007Q1

REPORT INFORMATION
  Report Type: 
  Country: None (occurrence: None)
  Receive Date: 20070111
  Receipt Date: 20070111
  Transmission Date: 20070707
  Serious: Yes (Other)
  Sender: FDA-Public Use
  Company Number: None

PATIENT
  Age: 41 Year
  Sex: Male
  Weight: 95.2554 kg

DRUGS (1)
  1. ZICAM NASAL SPRAY MATRIXX [Suspect]
     Indication: NASOPHARYNGITIS
     Dosage: AS DIRECTED NASAL
     Route: 045
     Dates: start: 20061219, end: 20061219

REACTIONS (3)
  - ANOSMIA [None]
  - HEADACHE [None]
  - RHINALGIA [None]
